FAERS Safety Report 5102353-8 (Version None)
Quarter: 2006Q3

REPORT INFORMATION
  Report Type: 
  Country: None (occurrence: None)
  Receive Date: 20060912
  Receipt Date: 20060612
  Transmission Date: 20061208
  Serious: No
  Sender: FDA-Public Use
  Company Number: US-GLAXOSMITHKLINE-A0608625A

PATIENT
  Age: 21 Month
  Sex: Male

DRUGS (2)
  1. FLOVENT [Suspect]
     Indication: ASTHMA
     Dosage: 110MG AS REQUIRED
     Route: 055
  2. ALBUTEROL [Concomitant]

REACTIONS (1)
  - OFF LABEL USE [None]
